FAERS Safety Report 7793335-6 (Version None)
Quarter: 2011Q4

REPORT INFORMATION
  Report Type: 
  Country: None (occurrence: None)
  Receive Date: 20111003
  Receipt Date: 20110926
  Transmission Date: 20120403
  Serious: Yes (Other)
  Sender: FDA-Public Use
  Company Number: US-JNJFOC-20110912167

PATIENT
  Sex: Female
  Weight: 68.04 kg

DRUGS (1)
  1. CONCERTA [Suspect]
     Indication: ATTENTION DEFICIT/HYPERACTIVITY DISORDER
     Route: 048
     Dates: start: 20010101

REACTIONS (4)
  - OVARIAN CYST [None]
  - STRESS [None]
  - DRUG EFFECT DECREASED [None]
  - RHINITIS [None]
